FAERS Safety Report 4563613-2 (Version None)
Quarter: 2005Q1

REPORT INFORMATION
  Report Type: 
  Country: None (occurrence: None)
  Receive Date: 20050128
  Receipt Date: 20041123
  Transmission Date: 20050727
  Serious: No
  Sender: FDA-Public Use
  Company Number: US-GLAXOSMITHKLINE-A0534903A

PATIENT
  Sex: Female

DRUGS (3)
  1. WELLBUTRIN [Suspect]
     Indication: BIPOLAR DISORDER
  2. LITHIUM [Concomitant]
  3. KLONOPIN [Concomitant]

REACTIONS (1)
  - MOOD SWINGS [None]
